FAERS Safety Report 8268749-0 (Version None)
Quarter: 2012Q2

REPORT INFORMATION
  Report Type: 
  Country: None (occurrence: None)
  Receive Date: 20120409
  Receipt Date: 20120409
  Transmission Date: 20120825
  Serious: Yes (Life-Threatening)
  Sender: FDA-Public Use
  Company Number: None

PATIENT
  Age: 61 Year
  Sex: Female
  Weight: 74.842 kg

DRUGS (1)
  1. VICODIN [Suspect]
     Indication: BACK PAIN
     Dosage: 2PILLS
     Route: 048

REACTIONS (5)
  - EYE IRRITATION [None]
  - DYSSTASIA [None]
  - DISTURBANCE IN ATTENTION [None]
  - HEADACHE [None]
  - VOMITING [None]
